FAERS Safety Report 4697745-5 (Version None)
Quarter: 2005Q2

REPORT INFORMATION
  Report Type: 
  Country: None (occurrence: None)
  Receive Date: 20050119
  Receipt Date: 20050119
  Transmission Date: 20051028
  Serious: No
  Sender: FDA-Public Use
  Company Number: None

PATIENT
  Sex: Female
  Weight: 56.6996 kg

DRUGS (11)
  1. OXYCODONE HCL [Suspect]
     Indication: SICKLE CELL ANAEMIA
     Dosage: 6 TABLETS Q8HRS (REFILLED Q 14 DAYS)
  2. OXYDOSE [Concomitant]
  3. LEXAPRO [Concomitant]
  4. PLAVIX [Concomitant]
  5. ASPIRIN [Concomitant]
  6. AMBIEN [Concomitant]
  7. LASIX [Concomitant]
  8. BEXTRA [Concomitant]
  9. LOVENOX [Concomitant]
  10. ALLEGRA [Concomitant]
  11. KLORVESS [Concomitant]

REACTIONS (2)
  - DRUG INEFFECTIVE [None]
  - THERAPEUTIC RESPONSE UNEXPECTED WITH DRUG SUBSTITUTION [None]
